FAERS Safety Report 10386074 (Version 1)
Quarter: 2014Q1

REPORT INFORMATION
  Report Type: Spontaneous
  Country: US (occurrence: None)
  Receive Date: 20140306
  Receipt Date: 20140306
  Transmission Date: 20141002
  Serious: Yes (Hospitalization, Other)
  Sender: FDA-Public Use
  Company Number: 163-21880-13082487

PATIENT
  Age: 79 Year
  Sex: Female
  Weight: 72.7 kg

DRUGS (11)
  1. REVLIMID [Suspect]
     Indication: PLASMA CELL MYELOMA
     Dosage: 21 IN 21D
     Route: 048
     Dates: start: 20130802
  2. ACETAMINOPHEN (PARACETAMOL) [Concomitant]
  3. HYDROCHLOROTHIAZIDE (HYDROCHLOROTHIAZIDE) [Concomitant]
  4. VITAMIN D3 (COLECALCIFEROL) [Concomitant]
  5. TRIAMTERENE (TRIAMTERENE) [Concomitant]
  6. CENTRUM SILVER (CENTRUM SILVER) [Concomitant]
  7. FISH OIL (FISH OIL) [Concomitant]
  8. ASA (ACETYLSALICYLIC ACID [Concomitant]
  9. DEXAMETHASONE (DEXAMETHASONE) [Concomitant]
  10. LISINOPRIL (LISINOPRIL) [Concomitant]
  11. SIMVASTATIN (SIMVASTATIN) [Concomitant]

REACTIONS (4)
  - Myocardial infarction [None]
  - Anaemia [None]
  - Palpitations [None]
  - Fatigue [None]
